FAERS Safety Report 22345858 (Version 3)
Quarter: 2023Q2

REPORT INFORMATION
  Report Type: Spontaneous
  Country: US (occurrence: US)
  Receive Date: 20230519
  Receipt Date: 20230605
  Transmission Date: 20230721
  Serious: Yes (Death)
  Sender: FDA-Public Use
  Company Number: US-KARYOPHARM-2023KPT001259

PATIENT

DRUGS (8)
  1. XPOVIO [Suspect]
     Active Substance: SELINEXOR
     Indication: Plasma cell myeloma
     Dosage: 100 MG, WEEKLY
     Route: 048
     Dates: start: 202109, end: 20230511
  2. CITALOPRAM [Concomitant]
     Active Substance: CITALOPRAM HYDROBROMIDE
  3. CLONAZEPAM [Concomitant]
     Active Substance: CLONAZEPAM
  4. LAMOTRIGINE [Concomitant]
     Active Substance: LAMOTRIGINE
  5. METOPROLOL [Concomitant]
     Active Substance: METOPROLOL
  6. ONDANSETRON [Concomitant]
     Active Substance: ONDANSETRON
  7. POMALYST [Concomitant]
     Active Substance: POMALIDOMIDE
  8. TOPIRAMATE [Concomitant]
     Active Substance: TOPIRAMATE

REACTIONS (1)
  - Death [Fatal]

NARRATIVE: CASE EVENT DATE: 20230501
